FAERS Safety Report 6147820-3 (Version None)
Quarter: 2009Q2

REPORT INFORMATION
  Report Type: 
  Country: None (occurrence: None)
  Receive Date: 20090408
  Receipt Date: 20090402
  Transmission Date: 20091009
  Serious: Yes (Hospitalization)
  Sender: FDA-Public Use
  Company Number: JP-ASTRAZENECA-2009AP00890

PATIENT
  Age: 61 Year
  Sex: Female

DRUGS (6)
  1. ARIMIDEX [Suspect]
     Indication: BREAST CANCER
     Route: 048
     Dates: start: 20081211, end: 20081225
  2. NORVASC [Concomitant]
     Indication: HYPERTENSION
     Route: 048
     Dates: start: 20081008
  3. OLMETEC [Concomitant]
     Route: 048
     Dates: start: 20081008
  4. SPIROPENT [Concomitant]
     Route: 048
     Dates: start: 20081008
  5. MUCOSOLVAN L [Concomitant]
     Route: 048
     Dates: start: 20081008
  6. HOKUNALIN:TAPE [Concomitant]
     Route: 062
     Dates: start: 20081008

REACTIONS (1)
  - INTERSTITIAL LUNG DISEASE [None]
